FAERS Safety Report 14505486 (Version 1)
Quarter: 2018Q1

REPORT INFORMATION
  Report Type: Spontaneous
  Country: US (occurrence: US)
  Receive Date: 20180208
  Receipt Date: 20180208
  Transmission Date: 20180509
  Serious: No
  Sender: FDA-Public Use
  Company Number: US-ASTRAZENECA-2018SE13074

PATIENT
  Sex: Female

DRUGS (3)
  1. INSULIN [Concomitant]
     Active Substance: INSULIN NOS
     Dosage: INJECTION
  2. BRILINTA [Suspect]
     Active Substance: TICAGRELOR
     Indication: STENT PLACEMENT
     Route: 048
     Dates: start: 201711
  3. INSULIN [Concomitant]
     Active Substance: INSULIN NOS
     Dosage: INJECTION

REACTIONS (3)
  - Anxiety [Unknown]
  - Dyspnoea [Unknown]
  - Fear [Unknown]
